FAERS Safety Report 17458849 (Version 1)
Quarter: 2020Q1

REPORT INFORMATION
  Report Type: Spontaneous
  Country: US (occurrence: US)
  Receive Date: 20200225
  Receipt Date: 20200225
  Transmission Date: 20200409
  Serious: No
  Sender: FDA-Public Use
  Company Number: US-IGSA-SR10008541

PATIENT
  Age: 59 Year
  Sex: Female
  Weight: 49 kg

DRUGS (15)
  1. VALSARTAN. [Concomitant]
     Active Substance: VALSARTAN
  2. MAGNESIUMOXIDE [Concomitant]
     Active Substance: MAGNESIUM OXIDE
  3. AMLODIPINE [Concomitant]
     Active Substance: AMLODIPINE BESYLATE
  4. BREO ELLIPTA [Concomitant]
     Active Substance: FLUTICASONE FUROATE\VILANTEROL TRIFENATATE
  5. PROLASTIN-C LIQUID [Suspect]
     Active Substance: .ALPHA.1-PROTEINASE INHIBITOR HUMAN
     Indication: ALPHA-1 ANTI-TRYPSIN DEFICIENCY
     Dosage: 2966 MG, Q.WK.
     Route: 042
     Dates: start: 20190527
  6. TOVIAZ [Concomitant]
     Active Substance: FESOTERODINE FUMARATE
  7. NADOLOL. [Concomitant]
     Active Substance: NADOLOL
  8. BONIVA [Concomitant]
     Active Substance: IBANDRONATE SODIUM
  9. PANTOPRAZOLE [Concomitant]
     Active Substance: PANTOPRAZOLE
  10. MULTIVITAMIN                       /00097801/ [Concomitant]
     Active Substance: VITAMINS
  11. VENTOLIN HFA [Concomitant]
     Active Substance: ALBUTEROL SULFATE
  12. ASPIRIN                            /00002701/ [Concomitant]
     Active Substance: ASPIRIN
  13. VITAMIN C [Concomitant]
     Active Substance: ASCORBIC ACID
  14. VESICARE [Concomitant]
     Active Substance: SOLIFENACIN SUCCINATE
  15. CALCIUM CITRATE + D [Concomitant]
     Active Substance: CALCIUM CITRATE\CHOLECALCIFEROL

REACTIONS (2)
  - Constipation [Not Recovered/Not Resolved]
  - Abdominal distension [Not Recovered/Not Resolved]

NARRATIVE: CASE EVENT DATE: 201905
